FAERS Safety Report 10270842 (Version 1)
Quarter: 2014Q2

REPORT INFORMATION
  Report Type: Spontaneous
  Country: US (occurrence: None)
  Receive Date: 20140626
  Receipt Date: 20140626
  Transmission Date: 20141212
  Serious: Yes (Hospitalization)
  Sender: FDA-Public Use
  Company Number: None

PATIENT
  Age: 59 Year
  Sex: Female
  Weight: 77.11 kg

DRUGS (2)
  1. VEPESID [Suspect]
  2. CARBOPLATIN [Suspect]

REACTIONS (1)
  - Tumour lysis syndrome [None]
